FAERS Safety Report 8385715-5 (Version None)
Quarter: 2012Q2

REPORT INFORMATION
  Report Type: 
  Country: None (occurrence: None)
  Receive Date: 20120523
  Receipt Date: 20120508
  Transmission Date: 20120825
  Serious: Yes (Other)
  Sender: FDA-Public Use
  Company Number: HA12-146-AE

PATIENT
  Age: 52 Year
  Sex: Female
  Weight: 141.5223 kg

DRUGS (8)
  1. BACLOFEN [Concomitant]
  2. XANAX [Concomitant]
  3. CITALOPRAM HYDROBROMIDE [Suspect]
     Indication: FEAR
     Dosage: 1 TABLET A DAY, ORAL
     Route: 048
     Dates: start: 20120201, end: 20120405
  4. CITALOPRAM HYDROBROMIDE [Suspect]
     Indication: POST-TRAUMATIC STRESS DISORDER
     Dosage: 1 TABLET A DAY, ORAL
     Route: 048
     Dates: start: 20120201, end: 20120405
  5. CITALOPRAM HYDROBROMIDE [Suspect]
     Indication: ANXIETY
     Dosage: 1 TABLET A DAY, ORAL
     Route: 048
     Dates: start: 20120201, end: 20120405
  6. METFORMIN HCL [Concomitant]
  7. POTASSIUM CHLORIDE [Concomitant]
  8. CARVEDILOL [Concomitant]

REACTIONS (19)
  - CARDIAC FAILURE CONGESTIVE [None]
  - HYPERTENSION [None]
  - HYPOAESTHESIA [None]
  - HEART RATE IRREGULAR [None]
  - PALPITATIONS [None]
  - MUSCULOSKELETAL STIFFNESS [None]
  - DYSPNOEA [None]
  - PARAESTHESIA [None]
  - INSOMNIA [None]
  - SWELLING [None]
  - PYREXIA [None]
  - WEIGHT INCREASED [None]
  - TREMOR [None]
  - ABNORMAL SENSATION IN EYE [None]
  - DIARRHOEA [None]
  - MYOCARDIAL INFARCTION [None]
  - VITREOUS FLOATERS [None]
  - HEADACHE [None]
  - PAIN IN EXTREMITY [None]
